FAERS Safety Report 5288010-6 (Version None)
Quarter: 2007Q2

REPORT INFORMATION
  Report Type: 
  Country: None (occurrence: None)
  Receive Date: 20070402
  Receipt Date: 20070402
  Transmission Date: 20071010
  Serious: Yes (Other)
  Sender: FDA-Public Use
  Company Number: None

PATIENT
  Sex: Male
  Weight: 40.8237 kg

DRUGS (1)
  1. CEFOTAXIME SODIUM [Suspect]
     Indication: MENINGITIS
     Dosage: IV DRIP
     Route: 041
     Dates: start: 20061101, end: 20061103

REACTIONS (2)
  - RASH GENERALISED [None]
  - RASH PRURITIC [None]
